FAERS Safety Report 16182448 (Version 1)
Quarter: 2019Q2

REPORT INFORMATION
  Report Type: Spontaneous
  Country: CN (occurrence: CN)
  Receive Date: 20190410
  Receipt Date: 20190410
  Transmission Date: 20190711
  Serious: Yes (Hospitalization)
  Sender: FDA-Public Use
  Company Number: PHHY2019CN065870

PATIENT
  Sex: Male

DRUGS (2)
  1. ZYKADIA [Suspect]
     Active Substance: CERITINIB
     Indication: LUNG NEOPLASM MALIGNANT
     Dosage: 450 MG, QD (3 CAPSULES PER DAY)
     Route: 048
     Dates: start: 20190120, end: 20190317
  2. ZYKADIA [Suspect]
     Active Substance: CERITINIB
     Dosage: 2 DF, QD (2 CAPSULES PER DAY)
     Route: 048
     Dates: start: 20190328

REACTIONS (6)
  - Abdominal discomfort [Unknown]
  - Glucose tolerance increased [Recovered/Resolved]
  - Blood bilirubin increased [Recovered/Resolved]
  - Alanine aminotransferase increased [Recovered/Resolved]
  - Functional gastrointestinal disorder [Unknown]
  - Aspartate aminotransferase increased [Recovered/Resolved]

NARRATIVE: CASE EVENT DATE: 20190317
